FAERS Safety Report 21742095 (Version 1)
Quarter: 2022Q4

REPORT INFORMATION
  Report Type: Spontaneous
  Country: IE (occurrence: IE)
  Receive Date: 20221216
  Receipt Date: 20221216
  Transmission Date: 20230113
  Serious: Yes (Other)
  Sender: FDA-Public Use
  Company Number: None

PATIENT
  Age: 59 Year
  Sex: Male
  Weight: 100 kg

DRUGS (5)
  1. OLANZAPINE [Suspect]
     Active Substance: OLANZAPINE
     Indication: Schizoaffective disorder
     Dosage: PATIENT HAS BEEN ON THIS DEPOT SINCE 2015
     Route: 065
     Dates: start: 2015
  2. OLANZAPINE [Suspect]
     Active Substance: OLANZAPINE
     Indication: Schizoaffective disorder
     Dosage: 300MG IM EVERY 2 WEEKS, UNIT DOSE :300 MG,  FREQUENCY TIME :  2 WEEKS
     Route: 065
     Dates: start: 20221102
  3. OLANZAPINE [Suspect]
     Active Substance: OLANZAPINE
     Dosage: 5 MILLIGRAM DAILY; 5MG AT NIGHT, ON MEDICATION GREATER THAN 5 YEARS, UNIT DOSE : 5 MG, FREQUENCY TIM
     Route: 065
  4. METFORMIN HYDROCHLORIDE [Concomitant]
     Active Substance: METFORMIN HYDROCHLORIDE
     Indication: Weight control
     Dosage: ON MEDICATION GREATER THAN 5 YEARS, FREQUENCY TIME : 12  HOURS, UNIT DOSE : 500 MG
  5. FLUOXETINE [Concomitant]
     Active Substance: FLUOXETINE HYDROCHLORIDE
     Indication: Schizoaffective disorder
     Dosage: ON MEDICATION GREATER THAN 5 YEARS, UNIT DOSE : 40 MG, FREQUENCY TIME : 24  HOURS

REACTIONS (1)
  - Post-injection delirium sedation syndrome [Recovered/Resolved]

NARRATIVE: CASE EVENT DATE: 20221102
